FAERS Safety Report 24629997 (Version 1)
Quarter: 2024Q4

REPORT INFORMATION
  Report Type: Spontaneous
  Country: US (occurrence: US)
  Receive Date: 20241118
  Receipt Date: 20241118
  Transmission Date: 20250114
  Serious: No
  Sender: GRIFOLS
  Company Number: US-IGSA-BIG0026175

PATIENT
  Age: 46 Year
  Sex: Female
  Weight: 54.43 kg

DRUGS (6)
  1. XEMBIFY [Suspect]
     Active Substance: HUMAN IMMUNOGLOBULIN G
     Indication: Immunodeficiency common variable
     Dosage: 5 GRAM, Q.WK.
     Route: 058
     Dates: start: 20230920
  2. XEMBIFY [Suspect]
     Active Substance: HUMAN IMMUNOGLOBULIN G
     Dosage: 5 GRAM, Q.WK.
     Route: 058
     Dates: start: 20231011
  3. XEMBIFY [Suspect]
     Active Substance: HUMAN IMMUNOGLOBULIN G
     Dosage: 5 GRAM, TOTAL
     Route: 058
     Dates: start: 20230920, end: 20230920
  4. XEMBIFY [Suspect]
     Active Substance: HUMAN IMMUNOGLOBULIN G
     Dosage: 5 GRAM, TOTAL
     Route: 058
     Dates: start: 20230927, end: 20230927
  5. XEMBIFY [Suspect]
     Active Substance: HUMAN IMMUNOGLOBULIN G
     Dosage: 5 GRAM, TOTAL
     Route: 058
     Dates: start: 20231004, end: 20231004
  6. XEMBIFY [Suspect]
     Active Substance: HUMAN IMMUNOGLOBULIN G
     Dosage: 5 GRAM, TOTAL
     Route: 058
     Dates: start: 20231011, end: 20231011

REACTIONS (3)
  - Infusion site pain [Not Recovered/Not Resolved]
  - Infusion site erythema [Not Recovered/Not Resolved]
  - Infusion site discomfort [Not Recovered/Not Resolved]

NARRATIVE: CASE EVENT DATE: 20230920
